FAERS Safety Report 12673714 (Version 2)
Quarter: 2016Q3

REPORT INFORMATION
  Report Type: Spontaneous
  Country: US (occurrence: US)
  Receive Date: 20160822
  Receipt Date: 20160831
  Transmission Date: 20161109
  Serious: No
  Sender: FDA-Public Use
  Company Number: US-GLAXOSMITHKLINE-US2016116225

PATIENT
  Age: 56 Year
  Sex: Female

DRUGS (6)
  1. ADVAIR DISKUS [Suspect]
     Active Substance: FLUTICASONE PROPIONATE\SALMETEROL XINAFOATE
     Indication: ASTHMA
     Dosage: 1 PUFF(S), BID
     Dates: start: 20160727
  2. ASPIRIN. [Concomitant]
     Active Substance: ASPIRIN
  3. HYDROXYCHLOROQUINE [Concomitant]
     Active Substance: HYDROXYCHLOROQUINE
  4. AMOXICILLIN + CLAVULANATE K [Concomitant]
     Active Substance: AMOXICILLIN\CLAVULANATE POTASSIUM
  5. LORATADINE. [Concomitant]
     Active Substance: LORATADINE
  6. MONTELUKAST SODIUM. [Concomitant]
     Active Substance: MONTELUKAST SODIUM

REACTIONS (6)
  - Discomfort [Recovered/Resolved]
  - Muscle contracture [Recovered/Resolved]
  - Adverse reaction [Unknown]
  - Pain [Unknown]
  - Anxiety [Unknown]
  - Lung disorder [Recovered/Resolved]

NARRATIVE: CASE EVENT DATE: 20160727
